FAERS Safety Report 16250476 (Version 1)
Quarter: 2019Q2

REPORT INFORMATION
  Report Type: Spontaneous
  Country: US (occurrence: US)
  Receive Date: 20190325
  Receipt Date: 20190325
  Transmission Date: 20190711
  Serious: No
  Sender: FDA-Public Use
  Company Number: None

PATIENT
  Age: 85 Year
  Sex: Female

DRUGS (1)
  1. TYMLOS [Suspect]
     Active Substance: ABALOPARATIDE
     Indication: OSTEOPOROSIS
     Dosage: STRENGTH 3120 MCG/1.5ML PEN INJ
     Route: 058
     Dates: start: 201902

REACTIONS (3)
  - Abdominal pain upper [None]
  - Dyspnoea [None]
  - Headache [None]
